FAERS Safety Report 23050226 (Version 7)
Quarter: 2024Q3

REPORT INFORMATION
  Report Type: Spontaneous
  Country: ES (occurrence: ES)
  Receive Date: 20231010
  Receipt Date: 20240711
  Transmission Date: 20241017
  Serious: Yes (Other)
  Sender: NOVARTIS
  Company Number: ES-SANDOZ-SDZ2023ES035663

PATIENT
  Age: 34 Year
  Sex: Male

DRUGS (17)
  1. PAZOPANIB [Suspect]
     Active Substance: PAZOPANIB
     Indication: Desmoplastic small round cell tumour
     Dosage: 800 MG, QD, FOURTH LINE
     Route: 065
     Dates: start: 202010
  2. TOPOTECAN [Suspect]
     Active Substance: TOPOTECAN HYDROCHLORIDE
     Indication: Desmoplastic small round cell tumour
     Dosage: 0.75 MG/M2/DAY, DAYS 1-5, FIFTH LINE
     Route: 065
     Dates: start: 202103
  3. DOXORUBICIN [Suspect]
     Active Substance: DOXORUBICIN
     Indication: Desmoplastic small round cell tumour
     Dosage: 25 MG/M2, D1-3 (VDC, FIRST-LINE TREATMENT) P6 PROTOCOL (SEVEN CYCLES)
     Route: 065
     Dates: start: 20180808
  4. DOXORUBICIN [Suspect]
     Active Substance: DOXORUBICIN
     Dosage: UNK (FIVE CYCLES (VDC))
     Route: 065
     Dates: start: 2018
  5. ETOPOSIDE [Suspect]
     Active Substance: ETOPOSIDE
     Indication: Desmoplastic small round cell tumour
     Dosage: 1.8 MG/M2 D1-5 EVERY 3 WEEKS
     Route: 065
     Dates: start: 201902
  6. IRINOTECAN [Suspect]
     Active Substance: IRINOTECAN
     Indication: Desmoplastic small round cell tumour
     Dosage: 20 MG/M2 D1-5
     Route: 065
     Dates: start: 201904
  7. TEMOZOLOMIDE [Suspect]
     Active Substance: TEMOZOLOMIDE
     Indication: Desmoplastic small round cell tumour
     Dosage: 100 MG/M2 D1-5 EVERY 21 DAYS
     Route: 065
  8. CYCLOPHOSPHAMIDE [Suspect]
     Active Substance: CYCLOPHOSPHAMIDE
     Indication: Desmoplastic small round cell tumour
     Dosage: 2100 MG/M2 D1-2 EVERY 3 WEEKS
     Route: 065
  9. CYCLOPHOSPHAMIDE [Suspect]
     Active Substance: CYCLOPHOSPHAMIDE
     Dosage: 250 MG/M2/ DAY, DAYS 1-5
     Route: 065
     Dates: start: 202103
  10. VINCRISTINE [Suspect]
     Active Substance: VINCRISTINE
     Indication: Desmoplastic small round cell tumour
     Dosage: 0.67  MG/M2 D1-3
     Route: 065
     Dates: start: 201808
  11. VINCRISTINE [Suspect]
     Active Substance: VINCRISTINE
     Dosage: UNK, FIVE CYCLES
     Route: 065
     Dates: start: 2018
  12. PEGFILGRASTIM [Suspect]
     Active Substance: PEGFILGRASTIM
     Indication: Desmoplastic small round cell tumour
     Dosage: UNK, CYCLIC
     Route: 065
  13. TRABECTEDIN [Suspect]
     Active Substance: TRABECTEDIN
     Indication: Desmoplastic small round cell tumour
     Dosage: 1.5 MG/M2
     Route: 065
     Dates: start: 201907
  14. TRABECTEDIN [Suspect]
     Active Substance: TRABECTEDIN
     Dosage: 1.2 MG/M2, CYCLIC
     Route: 065
     Dates: start: 201907
  15. TRABECTEDIN [Suspect]
     Active Substance: TRABECTEDIN
     Dosage: 1 MG/M2
     Route: 065
  16. TRABECTEDIN [Suspect]
     Active Substance: TRABECTEDIN
     Dosage: NINE CYCLES OF TRABECTEDIN UNTIL MARCH 2020
     Route: 065
  17. IFOSFAMIDE [Suspect]
     Active Substance: IFOSFAMIDE
     Indication: Desmoplastic small round cell tumour
     Dosage: 100 MG/M2, CYCLIC
     Route: 065
     Dates: start: 201902

REACTIONS (4)
  - Desmoplastic small round cell tumour [Unknown]
  - Malignant neoplasm progression [Unknown]
  - Thrombocytopenia [Unknown]
  - Product use in unapproved indication [Unknown]
